FAERS Safety Report 23394324 (Version 1)
Quarter: 2024Q1

REPORT INFORMATION
  Report Type: Spontaneous
  Country: US (occurrence: US)
  Receive Date: 20240111
  Receipt Date: 20240111
  Transmission Date: 20240410
  Serious: No
  Sender: FDA-Public Use
  Company Number: US-BAUSCHBL-2024BNL000214

PATIENT
  Sex: Female

DRUGS (2)
  1. LUMIFY [Suspect]
     Active Substance: BRIMONIDINE TARTRATE
     Indication: Product used for unknown indication
     Dosage: INSTILLED IN ONLY 1 EYE
     Route: 047
  2. LUMIFY [Suspect]
     Active Substance: BRIMONIDINE TARTRATE

REACTIONS (2)
  - Vitreous floaters [Unknown]
  - Eye colour change [Unknown]

NARRATIVE: CASE EVENT DATE: 20231201
